FAERS Safety Report 21714412 (Version 1)
Quarter: 2022Q4

REPORT INFORMATION
  Report Type: Spontaneous
  Country: US (occurrence: None)
  Receive Date: 20221209
  Receipt Date: 20221209
  Transmission Date: 20230113
  Serious: No
  Sender: FDA-Public Use
  Company Number: None

PATIENT
  Sex: Female

DRUGS (7)
  1. AMBRISENTAN [Suspect]
     Active Substance: AMBRISENTAN
     Indication: Cor pulmonale
     Dosage: FREQUENCY : DAILY;?
     Route: 048
  2. ATIVAN [Concomitant]
     Active Substance: LORAZEPAM
  3. FUROSEMIDE [Concomitant]
     Active Substance: FUROSEMIDE
  4. ALDACTONE [Concomitant]
     Active Substance: SPIRONOLACTONE
  5. ADCIRCA [Concomitant]
     Active Substance: TADALAFIL
  6. LETAIRIS [Concomitant]
     Active Substance: AMBRISENTAN
  7. POTASSIUM [Concomitant]
     Active Substance: POTASSIUM

REACTIONS (6)
  - Dyspnoea [None]
  - Fatigue [None]
  - Therapeutic product effect decreased [None]
  - Neuropathy peripheral [None]
  - Humerus fracture [None]
  - Upper limb fracture [None]
